FAERS Safety Report 7910288-8 (Version None)
Quarter: 2011Q4

REPORT INFORMATION
  Report Type: 
  Country: None (occurrence: None)
  Receive Date: 20111111
  Receipt Date: 20111103
  Transmission Date: 20120403
  Serious: Yes (Hospitalization)
  Sender: FDA-Public Use
  Company Number: GR-US-EMD SERONO, INC.-7093793

PATIENT
  Sex: Female

DRUGS (6)
  1. SALOSPIR [Concomitant]
  2. REBIF [Suspect]
     Dates: start: 20110701, end: 20110901
  3. AMIODARONE HCL [Concomitant]
  4. REBIF [Suspect]
     Indication: MULTIPLE SCLEROSIS
     Dates: start: 20040901, end: 20110601
  5. ZANTAC [Concomitant]
  6. REBIF [Suspect]
     Dates: start: 20111101

REACTIONS (2)
  - CARDIAC DISORDER [None]
  - TACHYCARDIA [None]
